FAERS Safety Report 8276326 (Version 4)
Quarter: 2012Q4

REPORT INFORMATION
  Report Type: Report from Study
  Country: CZ (occurrence: CZ)
  Receive Date: 20111206
  Receipt Date: 20121023
  Transmission Date: 20130627
  Serious: Yes (Hospitalization)
  Sender: FDA-Public Use
  Company Number: CZ-UCBSA-046547

PATIENT
  Age: 54 Year
  Sex: Male
  Weight: 75.5 kg

DRUGS (2)
  1. CERTOLIZUMAB PEGOL [Suspect]
     Indication: PSORIATIC ARTHROPATHY
     Dosage: 400 MG
     Route: 058
     Dates: start: 20110328
  2. CERTOLIZUMAB PEGOL [Suspect]
     Indication: PSORIATIC ARTHROPATHY
     Route: 058
     Dates: start: 20110214, end: 20110314

REACTIONS (1)
  - Tendon rupture [Recovered/Resolved]
